FAERS Safety Report 9934548 (Version 1)
Quarter: 2014Q1

REPORT INFORMATION
  Report Type: Spontaneous
  Country: US (occurrence: US)
  Receive Date: 20140228
  Receipt Date: 20140228
  Transmission Date: 20141002
  Serious: No
  Sender: FDA-Public Use
  Company Number: US-ASTRAZENECA-2013SE84513

PATIENT
  Age: 32 Year
  Sex: Male
  Weight: 88.5 kg

DRUGS (6)
  1. TOPROL-XL [Suspect]
     Indication: HYPERTENSION
     Route: 048
     Dates: start: 201212
  2. TOPROL-XL [Suspect]
     Indication: HYPERTENSION
     Route: 048
     Dates: start: 2013
  3. XANAX [Concomitant]
     Indication: ANXIETY
     Dosage: 0.25MG 3 DAILY PRN
  4. FISH OIL [Concomitant]
     Indication: BLOOD TRIGLYCERIDES INCREASED
  5. FISH OIL [Concomitant]
     Indication: BLOOD CHOLESTEROL INCREASED
  6. CO Q10 [Concomitant]
     Indication: SUPPLEMENTATION THERAPY

REACTIONS (12)
  - Adverse event [Not Recovered/Not Resolved]
  - Blood triglycerides increased [Not Recovered/Not Resolved]
  - Blood cholesterol increased [Not Recovered/Not Resolved]
  - Appetite disorder [Unknown]
  - Blood pressure abnormal [Not Recovered/Not Resolved]
  - Dizziness [Not Recovered/Not Resolved]
  - Headache [Not Recovered/Not Resolved]
  - Paraesthesia [Not Recovered/Not Resolved]
  - Palpitations [Not Recovered/Not Resolved]
  - Anxiety [Not Recovered/Not Resolved]
  - Off label use [Not Recovered/Not Resolved]
  - Off label use [Unknown]
